FAERS Safety Report 7074366-0 (Version None)
Quarter: 2010Q4

REPORT INFORMATION
  Report Type: 
  Country: None (occurrence: None)
  Receive Date: 20101029
  Receipt Date: 20101024
  Transmission Date: 20110411
  Serious: Yes (Death, Hospitalization)
  Sender: FDA-Public Use
  Company Number: DE-ROCHE-737071

PATIENT
  Age: 52 Year
  Sex: Female
  Weight: 76 kg

DRUGS (2)
  1. TOCILIZUMAB [Suspect]
     Indication: RHEUMATOID ARTHRITIS
     Dosage: 3 ADMINISTRATIONS GIVEN
     Route: 042
     Dates: start: 20100721
  2. CORTISON [Suspect]
     Indication: RHEUMATOID ARTHRITIS
     Route: 065
     Dates: start: 20091201

REACTIONS (3)
  - ACUTE RESPIRATORY DISTRESS SYNDROME [None]
  - PNEUMONIA PRIMARY ATYPICAL [None]
  - PULMONARY CONGESTION [None]
